FAERS Safety Report 24710812 (Version 1)
Quarter: 2024Q4

REPORT INFORMATION
  Report Type: Spontaneous
  Country: FR (occurrence: FR)
  Receive Date: 20241209
  Receipt Date: 20241209
  Transmission Date: 20250115
  Serious: Yes (Other)
  Sender: BRISTOL-MYERS SQUIBB COMPANY
  Company Number: FR-BRISTOL-MYERS SQUIBB COMPANY-2024-186670

PATIENT
  Age: 76 Year
  Sex: Male
  Weight: 65 kg

DRUGS (1)
  1. OPDIVO [Suspect]
     Active Substance: NIVOLUMAB
     Indication: Non-small cell lung cancer stage III
     Dosage: PLATINUM-BASED CHEMOTHERAPY EVERY 3 WEEKS FOR 3 CYCLES
     Route: 042
     Dates: start: 20241007, end: 20241007

REACTIONS (1)
  - Hepatotoxicity [Unknown]
